FAERS Safety Report 8971161 (Version 1)
Quarter: 2012Q4

REPORT INFORMATION
  Report Type: 
  Country: IT (occurrence: IT)
  Receive Date: 20121218
  Receipt Date: 20121218
  Transmission Date: 20130627
  Serious: Yes (Hospitalization)
  Sender: FDA-Public Use
  Company Number: IT-PFIZER INC-2012319277

PATIENT
  Age: 31 Year
  Sex: Female

DRUGS (2)
  1. ALPRAZOLAM [Suspect]
     Dosage: 30 mg, total dosage
     Route: 048
     Dates: start: 20121101, end: 20121101
  2. COCAINE [Concomitant]
     Dosage: UNK

REACTIONS (3)
  - Drug abuse [Unknown]
  - Confusional state [Unknown]
  - Sopor [Unknown]
